FAERS Safety Report 15120189 (Version 2)
Quarter: 2018Q3

REPORT INFORMATION
  Report Type: Spontaneous
  Country: JP (occurrence: JP)
  Receive Date: 20180709
  Receipt Date: 20180716
  Transmission Date: 20181010
  Serious: Yes (Death)
  Sender: FDA-Public Use
  Company Number: JP-JT-EVA201801955KERYXP-001

PATIENT
  Age: 60 Year
  Sex: Female

DRUGS (4)
  1. FOSRENOL [Concomitant]
     Active Substance: LANTHANUM CARBONATE
     Indication: HYPERPHOSPHATAEMIA
     Dosage: UNK
     Route: 048
  2. RIONA [Suspect]
     Active Substance: FERRIC CITRATE ANHYDROUS
     Indication: HYPERPHOSPHATAEMIA
     Dosage: 1500 MG, QD
     Route: 048
     Dates: start: 20171219
  3. NESP [Concomitant]
     Active Substance: DARBEPOETIN ALFA
     Indication: NEPHROGENIC ANAEMIA
     Dosage: 75 MICRO?G, QWK
     Route: 042
     Dates: end: 20180326
  4. NESP [Concomitant]
     Active Substance: DARBEPOETIN ALFA
     Dosage: 60 MICRO?G, QWK
     Route: 042
     Dates: start: 20180327

REACTIONS (1)
  - Interstitial lung disease [Fatal]
